FAERS Safety Report 4790992-3 (Version None)
Quarter: 2005Q4

REPORT INFORMATION
  Report Type: 
  Country: None (occurrence: None)
  Receive Date: 20051007
  Receipt Date: 20050930
  Transmission Date: 20060501
  Serious: Yes (Other)
  Sender: FDA-Public Use
  Company Number: 2005UW14703

PATIENT
  Sex: Female

DRUGS (1)
  1. ENTOCORT EC [Suspect]
     Indication: CROHN'S DISEASE
     Dosage: TAPERED FROM 9 MG TO 6 MG
     Route: 048

REACTIONS (3)
  - BLOOD POTASSIUM DECREASED [None]
  - HYPOKALAEMIA [None]
  - MYOSITIS [None]
